FAERS Safety Report 7926986-6 (Version None)
Quarter: 2011Q4

REPORT INFORMATION
  Report Type: 
  Country: None (occurrence: None)
  Receive Date: 20111118
  Receipt Date: 20111110
  Transmission Date: 20120403
  Serious: Yes (Life-Threatening, Hospitalization)
  Sender: FDA-Public Use
  Company Number: TW-ABBOTT-11P-153-0873344-00

PATIENT
  Age: 39 Year
  Sex: Male

DRUGS (3)
  1. VALPROATE SODIUM [Suspect]
     Indication: BIPOLAR DISORDER
     Dosage: DAILY
     Route: 065
  2. QUETIAPINE FUMARATE [Suspect]
     Indication: DEPRESSION
     Dosage: DAILY
     Route: 065
  3. SULPIRIDE [Suspect]
     Indication: DEPRESSION
     Dosage: DAILY
     Route: 065

REACTIONS (12)
  - HYPERGLYCAEMIC HYPEROSMOLAR NONKETOTIC SYNDROME [None]
  - GLUCOSE URINE PRESENT [None]
  - THIRST [None]
  - DEPRESSED MOOD [None]
  - METABOLIC ACIDOSIS [None]
  - DECREASED APPETITE [None]
  - BLOOD POTASSIUM INCREASED [None]
  - BLOOD PRESSURE DIASTOLIC INCREASED [None]
  - BLOOD OSMOLARITY INCREASED [None]
  - TACHYCARDIA [None]
  - FATIGUE [None]
  - DIABETES MELLITUS [None]
